FAERS Safety Report 9392224 (Version 2)
Quarter: 2013Q3

REPORT INFORMATION
  Report Type: Spontaneous
  Country: JP (occurrence: JP)
  Receive Date: 20130710
  Receipt Date: 20130712
  Transmission Date: 20140515
  Serious: Yes (Hospitalization, Other)
  Sender: FDA-Public Use
  Company Number: JP-ROCHE-1245981

PATIENT
  Age: 75 Year
  Sex: Male

DRUGS (2)
  1. ANEXATE [Suspect]
     Indication: DEPRESSED LEVEL OF CONSCIOUSNESS
     Route: 042
     Dates: start: 20130628, end: 20130628
  2. MYSLEE [Suspect]
     Indication: PRODUCT USED FOR UNKNOWN INDICATION
     Route: 048
     Dates: start: 201306, end: 201306

REACTIONS (2)
  - Stupor [Recovered/Resolved]
  - Accidental overdose [Unknown]
